FAERS Safety Report 24883453 (Version 1)
Quarter: 2025Q1

REPORT INFORMATION
  Report Type: Spontaneous
  Country: US (occurrence: None)
  Receive Date: 20250123
  Receipt Date: 20250123
  Transmission Date: 20250408
  Serious: Yes (Other)
  Sender: FDA-CTU
  Company Number: None

PATIENT
  Age: 67 Year
  Sex: Female
  Weight: 71.55 kg

DRUGS (7)
  1. KENALOG [Suspect]
     Active Substance: TRIAMCINOLONE ACETONIDE
     Indication: Nerve block
     Route: 008
     Dates: start: 20250114, end: 20250114
  2. DEVICE [Concomitant]
     Active Substance: DEVICE
  3. OXYCODONE [Concomitant]
     Active Substance: OXYCODONE
  4. OMEPRAZOLE [Concomitant]
     Active Substance: OMEPRAZOLE
  5. VITAMINS [Concomitant]
     Active Substance: VITAMINS
  6. ASPIRIN [Concomitant]
     Active Substance: ASPIRIN
  7. electrolyte solution [Concomitant]

REACTIONS (8)
  - Fatigue [None]
  - Palpitations [None]
  - Insomnia [None]
  - Mood altered [None]
  - Candida infection [None]
  - Pain [None]
  - Coccydynia [None]
  - Hyperhidrosis [None]

NARRATIVE: CASE EVENT DATE: 20250114
